FAERS Safety Report 5844578-X (Version None)
Quarter: 2008Q3

REPORT INFORMATION
  Report Type: 
  Country: None (occurrence: None)
  Receive Date: 20080813
  Receipt Date: 20080813
  Transmission Date: 20090109
  Serious: No
  Sender: FDA-Public Use
  Company Number: None

PATIENT
  Age: 39 Year
  Sex: Female
  Weight: 63.5036 kg

DRUGS (2)
  1. SERTRALINE [Suspect]
     Indication: ANXIETY
     Dosage: 1 PO QD
     Route: 048
     Dates: start: 20070601
  2. SERTRALINE [Suspect]
     Indication: DEPRESSION
     Dosage: 1 PO QD
     Route: 048
     Dates: start: 20070601

REACTIONS (4)
  - DIZZINESS [None]
  - NAUSEA [None]
  - NO THERAPEUTIC RESPONSE [None]
  - THERAPEUTIC RESPONSE UNEXPECTED WITH DRUG SUBSTITUTION [None]
